FAERS Safety Report 17874248 (Version 1)
Quarter: 2020Q2

REPORT INFORMATION
  Report Type: Spontaneous
  Country: US (occurrence: US)
  Receive Date: 20200609
  Receipt Date: 20200609
  Transmission Date: 20200714
  Serious: No
  Sender: FDA-Public Use
  Company Number: US-JNJFOC-20200533045

PATIENT
  Age: 67 Year
  Sex: Female

DRUGS (1)
  1. WOMENS ROGAINE UNSCENTED [Suspect]
     Active Substance: MINOXIDIL
     Indication: ALOPECIA
     Dosage: WHOLE BOTTLE/ABOUT A BOTTLE WEEK, EVERY DAY,USING MORE THAN THE RECOMMENDED DOSING OF THE PRODUCT
     Route: 061
     Dates: start: 20191001

REACTIONS (1)
  - Overdose [Unknown]

NARRATIVE: CASE EVENT DATE: 201910
